FAERS Safety Report 4310548-6 (Version None)
Quarter: 2004Q1

REPORT INFORMATION
  Report Type: 
  Country: None (occurrence: None)
  Receive Date: 20040303
  Receipt Date: 20040206
  Transmission Date: 20041129
  Serious: Yes (Other)
  Sender: FDA-Public Use
  Company Number: ES-GLAXOSMITHKLINE-B0322636A

PATIENT
  Age: 65 Year
  Sex: Male
  Weight: 60 kg

DRUGS (4)
  1. LAMOTRIGINE [Suspect]
     Indication: CONVULSION
     Dosage: 200MG PER DAY
     Route: 048
     Dates: start: 20030701
  2. SINTROM [Concomitant]
     Dosage: 2MG PER DAY
     Route: 048
     Dates: start: 20020101
  3. AMIODARONE HCL [Concomitant]
     Route: 048
     Dates: start: 20020101
  4. CLONAZEPAM [Concomitant]
     Dosage: 500MCG PER DAY
     Dates: start: 20020101

REACTIONS (4)
  - FOOT FRACTURE [None]
  - MUSCLE RUPTURE [None]
  - TENDON DISORDER [None]
  - TENDON RUPTURE [None]
